FAERS Safety Report 18250586 (Version 1)
Quarter: 2020Q3

REPORT INFORMATION
  Report Type: Report from Study
  Country: IT (occurrence: IT)
  Receive Date: 20200909
  Receipt Date: 20200909
  Transmission Date: 20201103
  Serious: Yes (Other)
  Sender: FDA-Public Use
  Company Number: IT-009507513-2009ITA000863

PATIENT
  Age: 21 Year
  Sex: Female

DRUGS (3)
  1. XANAX [Suspect]
     Active Substance: ALPRAZOLAM
     Dosage: TOTAL DOSE: 1.25 MILLIGRAM
     Route: 048
     Dates: start: 20200720, end: 20200720
  2. REMERON [Suspect]
     Active Substance: MIRTAZAPINE
     Dosage: TOTAL DOSE: 270 MILLIGRAM
     Route: 048
     Dates: start: 20200720, end: 20200720
  3. GABAPENTIN. [Concomitant]
     Active Substance: GABAPENTIN
     Dosage: 300 MILLIGRAM

REACTIONS (1)
  - Sopor [Recovering/Resolving]

NARRATIVE: CASE EVENT DATE: 20200720
